FAERS Safety Report 15509675 (Version 1)
Quarter: 2018Q4

REPORT INFORMATION
  Report Type: Report from Study
  Country: BR (occurrence: BR)
  Receive Date: 20181016
  Receipt Date: 20181016
  Transmission Date: 20190205
  Serious: Yes (Other)
  Sender: FDA-Public Use
  Company Number: BR-GLAXOSMITHKLINE-BR2017204455

PATIENT
  Sex: Female

DRUGS (4)
  1. GLIFAGE [Suspect]
     Active Substance: METFORMIN HYDROCHLORIDE
     Indication: BLOOD GLUCOSE ABNORMAL
     Dosage: BID (MORNING AND NIGHT)
     Route: 065
  2. GALVUS [Suspect]
     Active Substance: VILDAGLIPTIN
     Dosage: UNK, BID (MORNING AND NIGHT)
     Route: 048
  3. DICLOFENAC [Suspect]
     Active Substance: DICLOFENAC
     Indication: BLOOD GLUCOSE ABNORMAL
     Dosage: UNK, BID (MORNING AND NIGHT)
     Route: 065
  4. GALVUS [Suspect]
     Active Substance: VILDAGLIPTIN
     Indication: BLOOD GLUCOSE ABNORMAL
     Dosage: UNK QD (MORNING)
     Route: 048

REACTIONS (5)
  - Product use in unapproved indication [Unknown]
  - Weight decreased [Unknown]
  - Somnolence [Unknown]
  - Dyschezia [Unknown]
  - Feeling cold [Unknown]
